FAERS Safety Report 9517147 (Version 3)
Quarter: 2013Q3

REPORT INFORMATION
  Report Type: Report from Study
  Country: US (occurrence: TH)
  Receive Date: 20130911
  Receipt Date: 20130926
  Transmission Date: 20140515
  Serious: Yes (Hospitalization)
  Sender: FDA-Public Use
  Company Number: TH-PFIZER INC-2010014006

PATIENT
  Age: 51 Year
  Sex: Female
  Weight: 35 kg

DRUGS (5)
  1. TOFACITINIB CITRATE [Suspect]
     Indication: RHEUMATOID ARTHRITIS
     Dosage: 10 MG, 2X/DAY
     Route: 048
     Dates: start: 20091013, end: 20100127
  2. METHOTREXATE SODIUM [Suspect]
     Indication: RHEUMATOID ARTHRITIS
     Dosage: 5 MG, WEEKLY
     Dates: start: 20081104
  3. METHOTREXATE SODIUM [Suspect]
     Dosage: 12.5 MG, WEEKLY
  4. LEFLUNOMIDE [Concomitant]
     Dosage: 20 MG, 2X/DAY
  5. FOLATE [Concomitant]
     Dosage: UNK

REACTIONS (1)
  - Bronchiectasis [Recovered/Resolved]
